FAERS Safety Report 12541838 (Version 1)
Quarter: 2016Q3

REPORT INFORMATION
  Report Type: Spontaneous
  Country: GB (occurrence: GB)
  Receive Date: 20160708
  Receipt Date: 20160708
  Transmission Date: 20161109
  Serious: Yes (Other)
  Sender: FDA-Public Use
  Company Number: GB-TEVA-673555ACC

PATIENT
  Sex: Male

DRUGS (7)
  1. PAROXETINE. [Suspect]
     Active Substance: PAROXETINE
     Dosage: UNK UNK, U
     Route: 065
     Dates: start: 200111
  2. PAROXETINE HYDROCHLORIDE. [Suspect]
     Active Substance: PAROXETINE HYDROCHLORIDE
     Indication: DEPRESSION
     Dosage: 5 ML DAILY; 5 ML, QD
     Route: 048
     Dates: start: 20031204
  3. PAROXETINE. [Suspect]
     Active Substance: PAROXETINE
     Indication: DEPRESSION
     Dosage: UNK
  4. PAROXETINE. [Suspect]
     Active Substance: PAROXETINE
     Dosage: 40 MILLIGRAM DAILY; 20 MG, BID
     Route: 048
     Dates: start: 20030206, end: 20031204
  5. CO-DYDRAMOL [Suspect]
     Active Substance: ACETAMINOPHEN\DIHYDROCODEINE
     Indication: PRODUCT USED FOR UNKNOWN INDICATION
     Route: 065
     Dates: start: 200111
  6. SEROXAT [Suspect]
     Active Substance: PAROXETINE HYDROCHLORIDE
     Indication: DEPRESSION
     Dosage: 40 MILLIGRAM DAILY; 20 MG, BID
     Route: 048
     Dates: start: 20031023
  7. PAROXETINE HYDROCHLORIDE. [Suspect]
     Active Substance: PAROXETINE HYDROCHLORIDE
     Indication: DEPRESSION
     Route: 048

REACTIONS (31)
  - Disturbance in attention [Unknown]
  - Hyperhidrosis [Unknown]
  - Panic attack [Unknown]
  - Abnormal behaviour [Unknown]
  - Lethargy [Unknown]
  - Sleep disorder [Unknown]
  - Nausea [Unknown]
  - Headache [Unknown]
  - Anxiety [Unknown]
  - Vomiting [Unknown]
  - Chest pain [Unknown]
  - Suicidal ideation [Unknown]
  - Withdrawal syndrome [Unknown]
  - Dizziness [Unknown]
  - Vertigo [Unknown]
  - Agitation [Unknown]
  - Nightmare [Unknown]
  - Mood swings [Unknown]
  - Personality change [Unknown]
  - Fatigue [Unknown]
  - Impulsive behaviour [Unknown]
  - Syncope [Unknown]
  - Insomnia [Unknown]
  - Flat affect [Unknown]
  - Aggression [Unknown]
  - Judgement impaired [Unknown]
  - Legal problem [Unknown]
  - Tremor [Unknown]
  - Paraesthesia [Unknown]
  - Memory impairment [Unknown]
  - Disorientation [Unknown]

NARRATIVE: CASE EVENT DATE: 20031023
